FAERS Safety Report 5346862-5 (Version None)
Quarter: 2007Q2

REPORT INFORMATION
  Report Type: 
  Country: None (occurrence: None)
  Receive Date: 20070604
  Receipt Date: 20070521
  Transmission Date: 20071010
  Serious: No
  Sender: FDA-Public Use
  Company Number: RENA-12159

PATIENT
  Age: 25 Year
  Sex: Female
  Weight: 44 kg

DRUGS (15)
  1. RENAGEL [Suspect]
     Indication: HYPERPHOSPHATAEMIA
     Dosage: 0.8 G TID PO
     Route: 048
     Dates: start: 20051214, end: 20070216
  2. FOSRENOL [Suspect]
     Dosage: 500 MG QID
     Dates: start: 20070216
  3. DECORTIN-H [Concomitant]
  4. BICANORM                          (SODIUM BICARBONATE) [Concomitant]
  5. DECOSTRIOL                           (CALCITRIOL) [Concomitant]
  6. VIGANTOLETTEN [Concomitant]
  7. TORASEMIDE HEXAL [Concomitant]
  8. IRBESARTAN [Concomitant]
  9. DYNACIL. [Concomitant]
  10. PANTOZOL. [Concomitant]
  11. SELEN LOGES [Concomitant]
  12. MAGNESIUM VERLA [Concomitant]
  13. PRAVASTATIN [Concomitant]
  14. NOVAMINSULFON RA [Concomitant]
  15. ISCOVER [Concomitant]

REACTIONS (4)
  - BLOOD CALCIUM DECREASED [None]
  - BLOOD PRESSURE DECREASED [None]
  - METABOLIC ACIDOSIS [None]
  - OXYGEN SATURATION DECREASED [None]
